FAERS Safety Report 8494553 (Version 2)
Quarter: 2013Q4

REPORT INFORMATION
  Report Type: Report from Study
  Country: IT (occurrence: IT)
  Receive Date: 20120404
  Receipt Date: 20131024
  Transmission Date: 20140711
  Serious: Yes (Death, Hospitalization, Other)
  Sender: FDA-Public Use
  Company Number: IT-CELGENEUS-083-21880-12031492

PATIENT
  Age: 79 Year
  Sex: Female
  Weight: 50 kg

DRUGS (5)
  1. REVLIMID [Suspect]
     Indication: ACUTE MYELOID LEUKAEMIA
     Dosage: 10 MILLIGRAM
     Route: 048
     Dates: start: 20110512, end: 20110520
  2. CYTARABINE [Suspect]
     Indication: ACUTE MYELOID LEUKAEMIA
     Dosage: 40 MILLIGRAM
     Route: 058
     Dates: start: 20110512, end: 20110526
  3. OMEPRAZOLE [Concomitant]
     Indication: PROPHYLAXIS
     Dosage: 20 MILLIGRAM
     Route: 065
     Dates: start: 20110920, end: 20110929
  4. ZYLORIC [Concomitant]
     Indication: BLOOD URIC ACID INCREASED
     Dosage: 600 MILLIGRAM
     Route: 065
     Dates: start: 20110919, end: 20110929
  5. ONCOCARBIDE [Concomitant]
     Indication: PLATELET COUNT ABNORMAL
     Dosage: 2000 MILLIGRAM
     Route: 048
     Dates: start: 20110919, end: 20110929

REACTIONS (3)
  - Acute myeloid leukaemia [Fatal]
  - Cerebral haemorrhage [Fatal]
  - General physical health deterioration [Not Recovered/Not Resolved]
